FAERS Safety Report 24148075 (Version 1)
Quarter: 2024Q3

REPORT INFORMATION
  Report Type: Spontaneous
  Country: US (occurrence: None)
  Receive Date: 20240728
  Receipt Date: 20240728
  Transmission Date: 20241017
  Serious: Yes (Hospitalization)
  Sender: Public
  Company Number: None

PATIENT
  Age: 24 Year
  Sex: Female
  Weight: 141.75 kg

DRUGS (20)
  1. OZEMPIC [Suspect]
     Active Substance: SEMAGLUTIDE
     Indication: Diabetes mellitus
     Dosage: 1 INJECTION EVERY 7 DAYS SUBCUTANEOUS?
     Route: 058
  2. OZEMPIC [Suspect]
     Active Substance: SEMAGLUTIDE
     Indication: Weight control
  3. METFORMIN [Concomitant]
     Active Substance: METFORMIN HYDROCHLORIDE
  4. GLIPIZIDE [Concomitant]
     Active Substance: GLIPIZIDE
  5. JARDIANCE [Concomitant]
     Active Substance: EMPAGLIFLOZIN
  6. LAMICTAL [Concomitant]
     Active Substance: LAMOTRIGINE
  7. LEXAPRO [Concomitant]
     Active Substance: ESCITALOPRAM OXALATE
  8. BUSPAR [Concomitant]
     Active Substance: BUSPIRONE HYDROCHLORIDE
  9. LOVAZA [Concomitant]
     Active Substance: OMEGA-3-ACID ETHYL ESTERS
  10. ADDERALL [Concomitant]
     Active Substance: AMPHETAMINE ASPARTATE\AMPHETAMINE SULFATE\DEXTROAMPHETAMINE SACCHARATE\DEXTROAMPHETAMINE SULFATE
  11. TRAZODONE [Concomitant]
     Active Substance: TRAZODONE HYDROCHLORIDE
  12. PRAVASTATIN [Concomitant]
     Active Substance: PRAVASTATIN
  13. DESMOPRESSIN [Concomitant]
     Active Substance: DESMOPRESSIN
  14. FENOFIBRATE [Concomitant]
     Active Substance: FENOFIBRATE
  15. PEPCID [Concomitant]
     Active Substance: FAMOTIDINE
  16. ALLEGRA [Concomitant]
     Active Substance: FEXOFENADINE HYDROCHLORIDE
  17. VITAMIN D [Concomitant]
     Active Substance: VITAMIN D NOS
  18. OMEPRAZOLE [Concomitant]
     Active Substance: OMEPRAZOLE
  19. PROPRANOLOL [Concomitant]
     Active Substance: PROPRANOLOL HYDROCHLORIDE
  20. MUTIVITAMIN WITH VITAMIN C AND ZINC [Concomitant]

REACTIONS (4)
  - Ovarian cyst ruptured [None]
  - Ovarian haemorrhage [None]
  - Dehydration [None]
  - Blood pressure decreased [None]

NARRATIVE: CASE EVENT DATE: 20240724
